FAERS Safety Report 16882875 (Version 1)
Quarter: 2019Q4

REPORT INFORMATION
  Report Type: Report from Study
  Country: None (occurrence: CO)
  Receive Date: 20191004
  Receipt Date: 20191004
  Transmission Date: 20200122
  Serious: Yes (Other)
  Sender: FDA-Public Use
  Company Number: CO-ABBVIE-19K-036-2866429-00

PATIENT
  Age: 45 Year
  Sex: Female
  Weight: 80 kg

DRUGS (1)
  1. HUMIRA [Suspect]
     Active Substance: ADALIMUMAB
     Indication: HIDRADENITIS
     Route: 058
     Dates: start: 20190708, end: 20190819

REACTIONS (16)
  - Tachycardia [Recovered/Resolved]
  - Tachycardia [Recovering/Resolving]
  - Anxiety [Recovering/Resolving]
  - Malaise [Recovering/Resolving]
  - Dyspnoea paroxysmal nocturnal [Recovering/Resolving]
  - Dizziness [Recovering/Resolving]
  - Nausea [Recovering/Resolving]
  - Epistaxis [Recovering/Resolving]
  - Epistaxis [Recovered/Resolved]
  - Headache [Recovering/Resolving]
  - Decreased appetite [Recovering/Resolving]
  - Diarrhoea [Recovering/Resolving]
  - Arthralgia [Recovering/Resolving]
  - Abdominal distension [Recovering/Resolving]
  - Paraesthesia [Recovering/Resolving]
  - Tremor [Recovering/Resolving]

NARRATIVE: CASE EVENT DATE: 20190708
